FAERS Safety Report 6646831-9 (Version None)
Quarter: 2010Q1

REPORT INFORMATION
  Report Type: 
  Country: None (occurrence: None)
  Receive Date: 20100323
  Receipt Date: 20100315
  Transmission Date: 20100710
  Serious: Yes (Hospitalization)
  Sender: FDA-Public Use
  Company Number: US-SANOFI-AVENTIS-2010SA015315

PATIENT
  Age: 63 Year
  Sex: Female

DRUGS (6)
  1. LANTUS [Suspect]
     Indication: TYPE 2 DIABETES MELLITUS
     Dosage: DOSE:120 UNIT(S)
     Route: 058
  2. LANTUS [Suspect]
     Route: 058
  3. APIDRA [Suspect]
     Indication: TYPE 2 DIABETES MELLITUS
     Dosage: DOSE:45 UNIT(S)
     Route: 058
  4. APIDRA [Suspect]
     Route: 058
  5. ALDACTONE [Concomitant]
  6. ZAROXOLYN [Concomitant]

REACTIONS (5)
  - ABASIA [None]
  - BLOOD GLUCOSE INCREASED [None]
  - FLUID RETENTION [None]
  - RENAL DISORDER [None]
  - SWELLING [None]
